FAERS Safety Report 8831646 (Version 4)
Quarter: 2013Q2

REPORT INFORMATION
  Report Type: Report from Study
  Country: JP (occurrence: JP)
  Receive Date: 20121009
  Receipt Date: 20130605
  Transmission Date: 20140414
  Serious: Yes (Hospitalization)
  Sender: FDA-Public Use
  Company Number: JP-GLAXOSMITHKLINE-B0835793A

PATIENT
  Age: 70 Year
  Sex: Female
  Weight: 44 kg

DRUGS (39)
  1. REVOLADE [Suspect]
     Indication: IDIOPATHIC THROMBOCYTOPENIC PURPURA
     Dosage: 25MG PER DAY
     Route: 048
     Dates: start: 20120501
  2. PREDONINE [Concomitant]
     Indication: IDIOPATHIC THROMBOCYTOPENIC PURPURA
     Route: 048
  3. PREDONINE [Concomitant]
     Indication: IDIOPATHIC THROMBOCYTOPENIC PURPURA
     Route: 048
  4. PREDONINE [Concomitant]
     Indication: IDIOPATHIC THROMBOCYTOPENIC PURPURA
     Route: 048
  5. PREDONINE [Concomitant]
     Indication: IDIOPATHIC THROMBOCYTOPENIC PURPURA
     Route: 048
  6. PREDONINE [Concomitant]
     Indication: IDIOPATHIC THROMBOCYTOPENIC PURPURA
     Route: 048
  7. PREDONINE [Concomitant]
     Indication: IDIOPATHIC THROMBOCYTOPENIC PURPURA
     Route: 048
  8. PREDONINE [Concomitant]
     Indication: IDIOPATHIC THROMBOCYTOPENIC PURPURA
     Route: 048
  9. PREDONINE [Concomitant]
     Indication: IDIOPATHIC THROMBOCYTOPENIC PURPURA
     Route: 048
     Dates: end: 20121220
  10. PREDONINE [Concomitant]
     Indication: IDIOPATHIC THROMBOCYTOPENIC PURPURA
     Route: 048
     Dates: start: 20121221, end: 20130306
  11. PREDONINE [Concomitant]
     Indication: IDIOPATHIC THROMBOCYTOPENIC PURPURA
     Route: 048
     Dates: start: 20130307, end: 20130328
  12. PREDONINE [Concomitant]
     Indication: IDIOPATHIC THROMBOCYTOPENIC PURPURA
     Route: 048
     Dates: start: 20130429
  13. THYRADIN S [Concomitant]
     Route: 048
  14. DIOVAN [Concomitant]
     Route: 048
     Dates: start: 201207
  15. JANUVIA [Concomitant]
     Route: 048
     Dates: start: 20120720
  16. ARGATROBAN [Concomitant]
     Route: 048
     Dates: start: 20120706, end: 20120712
  17. BAKTAR [Concomitant]
     Indication: INFECTION PROPHYLAXIS
     Route: 048
     Dates: end: 20120905
  18. NESINA [Concomitant]
     Route: 048
     Dates: start: 201207
  19. NESINA [Concomitant]
     Route: 048
     Dates: start: 20120906
  20. NOVORAPID [Concomitant]
     Dosage: 4IU TWICE PER DAY
     Route: 058
     Dates: start: 201207
  21. NOVORAPID [Concomitant]
     Dosage: 4IU TWICE PER DAY
     Route: 058
     Dates: start: 20120906
  22. VALTREX [Concomitant]
     Route: 048
  23. FLUCONAZOLE [Concomitant]
     Route: 048
     Dates: start: 20121004
  24. LANSOPRAZOLE [Concomitant]
     Route: 048
     Dates: start: 201207
  25. LANSOPRAZOLE [Concomitant]
     Route: 048
     Dates: start: 20120906
  26. OMEPRAL [Concomitant]
     Route: 048
     Dates: end: 20120706
  27. COROHERSER R [Concomitant]
     Route: 048
     Dates: end: 20120706
  28. DIFLUCAN [Concomitant]
     Indication: INFECTION PROPHYLAXIS
     Route: 048
     Dates: end: 20120706
  29. CONIEL [Concomitant]
     Route: 048
     Dates: end: 20120515
  30. OLMETEC [Concomitant]
     Route: 048
     Dates: end: 20120515
  31. VOGLIBOSE [Concomitant]
     Route: 048
     Dates: end: 20120515
  32. VOGLIBOSE [Concomitant]
     Route: 048
     Dates: start: 2012
  33. FOSAMAC [Concomitant]
     Route: 048
     Dates: end: 20121219
  34. MAGMITT [Concomitant]
     Route: 048
     Dates: end: 20120618
  35. AMARYL [Concomitant]
     Route: 048
     Dates: end: 20120515
  36. PLAVIX [Concomitant]
     Route: 048
     Dates: start: 20120906
  37. LIPITOR [Concomitant]
     Route: 048
     Dates: start: 201207
  38. LIPITOR [Concomitant]
     Route: 048
     Dates: start: 20120906
  39. ALENDRONATE [Concomitant]
     Route: 048
     Dates: start: 20121210

REACTIONS (6)
  - Thrombotic cerebral infarction [Recovered/Resolved with Sequelae]
  - Carotid artery thrombosis [Recovered/Resolved with Sequelae]
  - Condition aggravated [Recovering/Resolving]
  - Platelet count decreased [Recovering/Resolving]
  - Femur fracture [Recovering/Resolving]
  - Pharyngitis [Recovered/Resolved]
